FAERS Safety Report 4289351-1 (Version None)
Quarter: 2004Q1

REPORT INFORMATION
  Report Type: 
  Country: None (occurrence: None)
  Receive Date: 20040203
  Receipt Date: 20021227
  Transmission Date: 20041129
  Serious: Yes (Other)
  Sender: FDA-Public Use
  Company Number: 200227817BWH

PATIENT
  Age: 61 Year
  Sex: Female

DRUGS (3)
  1. AVELOX [Suspect]
     Dosage: 400 MG TOTAL DAILY, ORAL
     Route: 048
  2. ASPIRIN [Concomitant]
  3. LIPITOR [Concomitant]

REACTIONS (3)
  - CONFUSIONAL STATE [None]
  - HYPOAESTHESIA [None]
  - PARAESTHESIA [None]
